FAERS Safety Report 20567788 (Version 1)
Quarter: 2022Q1

REPORT INFORMATION
  Report Type: Spontaneous
  Country: US (occurrence: None)
  Receive Date: 20220308
  Receipt Date: 20220308
  Transmission Date: 20220423
  Serious: Yes (Death, Hospitalization)
  Sender: FDA-Public Use
  Company Number: US-ROCHE-3038156

PATIENT
  Sex: Female
  Weight: 68.100 kg

DRUGS (1)
  1. ALECENSA [Suspect]
     Active Substance: ALECTINIB HYDROCHLORIDE
     Indication: Non-small cell lung cancer
     Dosage: FOUR 150MG PILLS IN THE MORNING AND AT NIGHT ;ONGOING: NO
     Route: 048
     Dates: start: 20211216, end: 20220210

REACTIONS (2)
  - Respiratory failure [Fatal]
  - Feeding disorder [Fatal]
